FAERS Safety Report 6884850-8 (Version None)
Quarter: 2010Q3

REPORT INFORMATION
  Report Type: 
  Country: None (occurrence: None)
  Receive Date: 20100729
  Receipt Date: 20070911
  Transmission Date: 20110219
  Serious: Yes (Other)
  Sender: FDA-Public Use
  Company Number: US-PFIZER INC-2007072838

PATIENT
  Sex: Female
  Weight: 72.727 kg

DRUGS (10)
  1. CELEBREX [Suspect]
     Indication: ARTHRITIS
     Dosage: 200 MG
     Dates: start: 20070829, end: 20070830
  2. CELEBREX [Interacting]
     Indication: ARTHRALGIA
  3. ALCOHOL [Interacting]
     Dosage: TDD:8 OUNCES
  4. LITHIUM [Concomitant]
  5. LEVOTHYROXINE SODIUM [Concomitant]
  6. DEPAKOTE [Concomitant]
  7. LORAZEPAM [Concomitant]
  8. ACETAMINOPHEN [Concomitant]
  9. GAS-X [Concomitant]
  10. REFRESH TEARS [Concomitant]

REACTIONS (4)
  - BACK PAIN [None]
  - CHEST PAIN [None]
  - DRUG INTERACTION [None]
  - PAIN [None]
